FAERS Safety Report 9190917 (Version 1)
Quarter: 2013Q1

REPORT INFORMATION
  Report Type: Report from Study
  Country: CN (occurrence: CN)
  Receive Date: 20130326
  Receipt Date: 20130326
  Transmission Date: 20140127
  Serious: Yes (Other)
  Sender: FDA-Public Use
  Company Number: CN-ROCHE-1198738

PATIENT
  Age: 28 Year
  Sex: Female
  Weight: 52 kg

DRUGS (4)
  1. MYCOPHENOLATE MOFETIL [Suspect]
     Indication: LUPUS NEPHRITIS
     Route: 048
     Dates: start: 20120327, end: 20121220
  2. CALCITRIOL [Suspect]
     Indication: LUPUS NEPHRITIS
     Route: 048
     Dates: start: 20120327, end: 201301
  3. PREDNISONE [Concomitant]
     Indication: LUPUS NEPHRITIS
     Route: 048
     Dates: start: 20120327
  4. ALFA D [Concomitant]
     Indication: LUPUS NEPHRITIS
     Route: 048
     Dates: start: 201301, end: 201302

REACTIONS (6)
  - Protein urine present [Not Recovered/Not Resolved]
  - Drug ineffective [Unknown]
  - Exposure during pregnancy [Unknown]
  - Benign hydatidiform mole [Unknown]
  - Abortion induced [Unknown]
  - Joint swelling [Unknown]
